FAERS Safety Report 10149443 (Version 1)
Quarter: 2014Q2

REPORT INFORMATION
  Report Type: Spontaneous
  Country: AU (occurrence: None)
  Receive Date: 20140430
  Receipt Date: 20140430
  Transmission Date: 20141212
  Serious: Yes (Death)
  Sender: FDA-Public Use
  Company Number: PIN-2014-00006

PATIENT
  Sex: 0

DRUGS (2)
  1. PORFIMER SODIUM [Suspect]
     Indication: NON-SMALL CELL LUNG CANCER
     Route: 042
  2. PORFIMER SODIUM [Suspect]
     Route: 042

REACTIONS (1)
  - Acute respiratory distress syndrome [None]
